FAERS Safety Report 6629019-7 (Version None)
Quarter: 2010Q1

REPORT INFORMATION
  Report Type: 
  Country: None (occurrence: None)
  Receive Date: 20100311
  Receipt Date: 20090811
  Transmission Date: 20100710
  Serious: No
  Sender: FDA-Public Use
  Company Number: US-BIOGENIDEC-2009BI025191

PATIENT
  Age: 63 Year
  Sex: Male

DRUGS (4)
  1. AVONEX [Suspect]
     Indication: MULTIPLE SCLEROSIS
     Route: 030
     Dates: start: 20090727, end: 20090802
  2. AVONEX [Suspect]
     Route: 030
     Dates: start: 20090803, end: 20090809
  3. AVONEX [Suspect]
     Route: 030
     Dates: start: 20090810
  4. EXTRA STRENGTH TYLENOL [Concomitant]
     Indication: PREMEDICATION

REACTIONS (3)
  - INFLUENZA LIKE ILLNESS [None]
  - MUSCLE SPASMS [None]
  - ORAL SURGERY [None]
